FAERS Safety Report 4836771-X (Version None)
Quarter: 2005Q4

REPORT INFORMATION
  Report Type: 
  Country: None (occurrence: None)
  Receive Date: 20051123
  Receipt Date: 20051116
  Transmission Date: 20060501
  Serious: Yes (Death, Hospitalization)
  Sender: FDA-Public Use
  Company Number: US-MERCK-0511USA03109

PATIENT
  Age: 75 Year
  Sex: Female
  Weight: 53 kg

DRUGS (8)
  1. FOSAMAX [Concomitant]
     Route: 065
  2. PREDNISONE [Concomitant]
     Route: 065
  3. PRINIVIL [Concomitant]
     Route: 065
  4. LASIX [Concomitant]
     Route: 065
  5. TYLENOL [Concomitant]
     Route: 065
  6. CLONIDINE [Concomitant]
     Route: 065
  7. VIOXX [Suspect]
     Indication: RHEUMATOID ARTHRITIS
     Route: 048
     Dates: start: 20000103, end: 20000623
  8. VIOXX [Suspect]
     Indication: BACK PAIN
     Route: 048
     Dates: start: 20000103, end: 20000623

REACTIONS (11)
  - ATRIAL FIBRILLATION [None]
  - ATRIAL TACHYCARDIA [None]
  - BRONCHITIS ACUTE [None]
  - CANDIDIASIS [None]
  - CHRONIC OBSTRUCTIVE PULMONARY DISEASE [None]
  - CORONARY ARTERY DISEASE [None]
  - HYPOVOLAEMIA [None]
  - MYOCARDIAL INFARCTION [None]
  - PNEUMONIA [None]
  - PULMONARY FIBROSIS [None]
  - SYSTEMIC LUPUS ERYTHEMATOSUS [None]
